FAERS Safety Report 4548502-1 (Version None)
Quarter: 2005Q1

REPORT INFORMATION
  Report Type: 
  Country: None (occurrence: None)
  Receive Date: 20050110
  Receipt Date: 20041222
  Transmission Date: 20050727
  Serious: Yes (Death)
  Sender: FDA-Public Use
  Company Number: 4846

PATIENT
  Age: 68 Year
  Sex: Male

DRUGS (9)
  1. HYCAMTIN [Suspect]
     Dosage: 1MGM2 PER DAY
     Route: 042
     Dates: start: 20041129, end: 20041202
  2. PENTAERYTHRITOL [Concomitant]
     Route: 065
  3. CARBOPLATIN [Concomitant]
     Dosage: 450MG PER DAY
     Route: 042
     Dates: start: 20041006, end: 20041006
  4. ETOPOSIDE [Concomitant]
     Dosage: 180MG PER DAY
     Route: 042
     Dates: start: 20040901, end: 20041008
  5. RADIOTHERAPY [Concomitant]
     Route: 065
     Dates: start: 20040902, end: 20041013
  6. CHEMOTHERAPY [Concomitant]
     Dates: start: 20040901, end: 20041008
  7. LANSOPRAZOLE [Concomitant]
     Indication: DUODENAL ULCER
     Dosage: 30MG PER DAY
     Route: 048
     Dates: start: 20041006, end: 20041214
  8. RELIFEN [Concomitant]
     Indication: CANCER PAIN
     Dosage: 800MG PER DAY
     Route: 048
     Dates: start: 20041125, end: 20041212
  9. CISPLATIN [Concomitant]
     Dosage: 140MG PER DAY
     Route: 042
     Dates: start: 20040901, end: 20040901

REACTIONS (9)
  - CONDITION AGGRAVATED [None]
  - DEPRESSED LEVEL OF CONSCIOUSNESS [None]
  - DYSPNOEA [None]
  - INTERSTITIAL LUNG DISEASE [None]
  - PLATELET COUNT DECREASED [None]
  - PLEURAL EFFUSION [None]
  - PNEUMONIA [None]
  - PYREXIA [None]
  - RESPIRATORY FAILURE [None]
